FAERS Safety Report 6667131-7 (Version None)
Quarter: 2010Q1

REPORT INFORMATION
  Report Type: 
  Country: None (occurrence: None)
  Receive Date: 20100331
  Receipt Date: 20100318
  Transmission Date: 20100710
  Serious: Yes (Congenital Anomaly)
  Sender: FDA-Public Use
  Company Number: 2010AL001793

PATIENT
  Sex: Male

DRUGS (3)
  1. VENLAFAXINE HCL [Suspect]
     Indication: DRUG EXPOSURE DURING PREGNANCY
     Dosage: 225 MG; QD; TRPL
     Route: 064
  2. LITHIUM [Concomitant]
  3. CODEINE SULFATE [Concomitant]

REACTIONS (3)
  - HYPOSPADIAS [None]
  - MATERNAL DRUGS AFFECTING FOETUS [None]
  - MICROGNATHIA [None]
